FAERS Safety Report 23586832 (Version 1)
Quarter: 2024Q1

REPORT INFORMATION
  Report Type: Spontaneous
  Country: US (occurrence: US)
  Receive Date: 20240301
  Receipt Date: 20240301
  Transmission Date: 20240410
  Serious: Yes (Other)
  Sender: FDA-Public Use
  Company Number: US-PFIZER INC-202400053337

PATIENT
  Age: 36 Year
  Sex: Male
  Weight: 77.11 kg

DRUGS (1)
  1. OXBRYTA [Suspect]
     Active Substance: VOXELOTOR
     Indication: Sickle cell disease
     Dosage: 500MG, THREE TIMES A DAY, 1500MG
     Dates: start: 2016

REACTIONS (5)
  - Pain [Unknown]
  - Anxiety [Unknown]
  - Depression [Unknown]
  - Frequent bowel movements [Unknown]
  - Off label use [Unknown]
